FAERS Safety Report 15470214 (Version 9)
Quarter: 2020Q3

REPORT INFORMATION
  Report Type: Report from Study
  Country: CO (occurrence: CO)
  Receive Date: 20181005
  Receipt Date: 20200924
  Transmission Date: 20201102
  Serious: Yes (Hospitalization, Other)
  Sender: FDA-Public Use
  Company Number: CO-TAKEDA-2018TUS002219

PATIENT
  Age: 55 Year
  Sex: Female
  Weight: 59 kg

DRUGS (4)
  1. PREDNISOLONE                       /00016202/ [Concomitant]
     Active Substance: PREDNISOLONE
     Dosage: 5 MILLIGRAM, QD
  2. SALOFALK                           /00000301/ [Concomitant]
     Active Substance: AMINOSALICYLIC ACID
     Dosage: UNK UNK, QD
  3. VEDOLIZUMAB [Suspect]
     Active Substance: VEDOLIZUMAB
     Indication: COLITIS ULCERATIVE
     Dosage: 300 MILLIGRAM
     Route: 042
     Dates: start: 20171207, end: 20200708
  4. LAGRICEL [Concomitant]
     Active Substance: HYALURONATE SODIUM
     Dosage: UNK UNK, Q1HR
     Route: 047
     Dates: start: 20180723

REACTIONS (17)
  - Haematochezia [Not Recovered/Not Resolved]
  - Eye irritation [Not Recovered/Not Resolved]
  - Rectal haemorrhage [Recovered/Resolved]
  - Fall [Unknown]
  - Diarrhoea haemorrhagic [Not Recovered/Not Resolved]
  - Proctitis [Unknown]
  - Weight decreased [Unknown]
  - Ileostomy closure [Unknown]
  - Ocular hyperaemia [Not Recovered/Not Resolved]
  - Drug ineffective [Unknown]
  - Off label use [Unknown]
  - Joint injury [Unknown]
  - Dry eye [Not Recovered/Not Resolved]
  - Asthenia [Unknown]
  - Arthralgia [Not Recovered/Not Resolved]
  - Colon operation [Unknown]
  - Abdominal pain [Not Recovered/Not Resolved]

NARRATIVE: CASE EVENT DATE: 20171207
